FAERS Safety Report 9270892 (Version 3)
Quarter: 2013Q3

REPORT INFORMATION
  Report Type: Report from Study
  Country: CA (occurrence: CA)
  Receive Date: 20130506
  Receipt Date: 20130911
  Transmission Date: 20140515
  Serious: Yes (Hospitalization)
  Sender: FDA-Public Use
  Company Number: CA-ROCHE-1217260

PATIENT
  Age: 38 Year
  Sex: Female
  Weight: 27.47 kg

DRUGS (5)
  1. AVASTIN [Suspect]
     Indication: GLIOBLASTOMA
     Route: 042
     Dates: start: 20130418, end: 20130418
  2. TOPIRAMATE [Concomitant]
     Dosage: INCREASED THIS WEEK
     Route: 065
     Dates: start: 20130408
  3. OXYCODONE [Concomitant]
     Dosage: 500/325
     Route: 065
  4. DEXAMETHASONE [Concomitant]
     Route: 065
  5. ZANTAC [Concomitant]
     Route: 065

REACTIONS (2)
  - Convulsion [Unknown]
  - Hypotension [Unknown]
